FAERS Safety Report 6306732-2 (Version None)
Quarter: 2009Q3

REPORT INFORMATION
  Report Type: 
  Country: None (occurrence: None)
  Receive Date: 20090812
  Receipt Date: 20090618
  Transmission Date: 20100115
  Serious: No
  Sender: FDA-Public Use
  Company Number: A0793094A

PATIENT

DRUGS (1)
  1. VERAMYST [Suspect]
     Route: 065

REACTIONS (2)
  - HYPERSENSITIVITY [None]
  - SWELLING [None]
